FAERS Safety Report 10434939 (Version 1)
Quarter: 2014Q3

REPORT INFORMATION
  Report Type: Spontaneous
  Country: US (occurrence: None)
  Receive Date: 20140815
  Receipt Date: 20140815
  Transmission Date: 20150326
  Serious: No
  Sender: FDA-Public Use
  Company Number: 2014TUS004171

PATIENT
  Age: 36 Year
  Sex: Female
  Weight: 99.8 kg

DRUGS (4)
  1. SUDAFED/ (PSEUDOEPHEDRINE HYDROCHLORIDE) [Concomitant]
  2. BRINTELLIX [Suspect]
     Active Substance: VORTIOXETINE HYDROBROMIDE
     Indication: DEPRESSION
     Route: 048
     Dates: start: 20140401
  3. BRINTELLIX [Suspect]
     Active Substance: VORTIOXETINE HYDROBROMIDE
     Indication: MAJOR DEPRESSION
     Route: 048
     Dates: start: 20140401
  4. CLARITIN-D (LORATADINE, PSEUDOEPHEDRINE SULFATE) [Concomitant]

REACTIONS (3)
  - Hallucination [None]
  - Palpitations [None]
  - Sinus congestion [None]

NARRATIVE: CASE EVENT DATE: 20140426
